FAERS Safety Report 19068945 (Version 1)
Quarter: 2021Q1

REPORT INFORMATION
  Report Type: Spontaneous
  Country: US (occurrence: US)
  Receive Date: 20210329
  Receipt Date: 20210329
  Transmission Date: 20210420
  Serious: Yes (Life-Threatening, Hospitalization)
  Sender: FDA-Public Use
  Company Number: US-TEVA-2021-US-1895769

PATIENT
  Age: 54 Year
  Sex: Male

DRUGS (11)
  1. NOREPINEPHRINE. [Suspect]
     Active Substance: NOREPINEPHRINE
     Dosage: 0.85 UG/KG/MIN
     Route: 065
  2. GLUCAGON. [Suspect]
     Active Substance: GLUCAGON
     Indication: DRUG THERAPY
     Dosage: 5MG/HR
     Route: 065
  3. APIXABAN [Concomitant]
     Active Substance: APIXABAN
     Indication: PRODUCT USED FOR UNKNOWN INDICATION
     Route: 048
  4. INSULIN [Suspect]
     Active Substance: INSULIN NOS
     Indication: DRUG THERAPY
     Dosage: HIGH DOSE: 10 UNITS/KG/HR
     Route: 065
  5. L?CARNITINE [Suspect]
     Active Substance: LEVOCARNITINE
     Indication: DRUG THERAPY
     Route: 065
  6. QUETIAPINE. [Concomitant]
     Active Substance: QUETIAPINE
     Indication: PRODUCT USED FOR UNKNOWN INDICATION
     Route: 048
  7. VALPROIC ACID. [Suspect]
     Active Substance: VALPROIC ACID
     Indication: OVERDOSE
     Route: 048
  8. NOREPINEPHRINE. [Suspect]
     Active Substance: NOREPINEPHRINE
     Indication: CARDIOGENIC SHOCK
     Dosage: 1.9 UG/KG/MIN
     Route: 065
  9. EPINEPHRINE. [Suspect]
     Active Substance: EPINEPHRINE
     Indication: CARDIOGENIC SHOCK
     Dosage: 0.08 UG/KG/MIN
     Route: 065
  10. VERAPAMIL [Suspect]
     Active Substance: VERAPAMIL HYDROCHLORIDE
     Indication: OVERDOSE
     Route: 048
  11. VASOPRESSIN. [Suspect]
     Active Substance: VASOPRESSIN
     Indication: CARDIOGENIC SHOCK
     Dosage: 43.2 IU (INTERNATIONAL UNIT) DAILY;
     Route: 065

REACTIONS (5)
  - Cardiogenic shock [Recovering/Resolving]
  - Drug ineffective [Unknown]
  - Acute kidney injury [Recovering/Resolving]
  - Overdose [Unknown]
  - Cardiotoxicity [Recovering/Resolving]
